FAERS Safety Report 23914502 (Version 1)
Quarter: 2024Q2

REPORT INFORMATION
  Report Type: Spontaneous
  Country: AU (occurrence: AU)
  Receive Date: 20240529
  Receipt Date: 20240529
  Transmission Date: 20240716
  Serious: Yes (Other)
  Sender: FDA-Public Use
  Company Number: AU-HALEON-2177876

PATIENT
  Age: 3 Year
  Sex: Male

DRUGS (1)
  1. ACETAMINOPHEN [Suspect]
     Active Substance: ACETAMINOPHEN
     Indication: Pyrexia
     Dosage: EXPDATE:202503

REACTIONS (4)
  - Foreign body in throat [Unknown]
  - Vomiting [Unknown]
  - Retching [Unknown]
  - Product complaint [Unknown]
